FAERS Safety Report 20849699 (Version 9)
Quarter: 2024Q2

REPORT INFORMATION
  Report Type: Spontaneous
  Country: US (occurrence: US)
  Receive Date: 20220519
  Receipt Date: 20240412
  Transmission Date: 20240716
  Serious: No
  Sender: FDA-Public Use
  Company Number: US-PFIZER INC-202200132552

PATIENT
  Age: 65 Year
  Sex: Female
  Weight: 85.73 kg

DRUGS (8)
  1. SOMAVERT [Suspect]
     Active Substance: PEGVISOMANT
     Indication: Acromegaly
     Dosage: 20 MG, DAILY
     Route: 058
     Dates: start: 20120312
  2. SOMAVERT [Suspect]
     Active Substance: PEGVISOMANT
     Indication: Pituitary tumour
     Dosage: 20 MG, ALTERNATE DAY (EVERY OTHER DAY)
  3. SOMAVERT [Suspect]
     Active Substance: PEGVISOMANT
     Dosage: 20 MG, DAILY (ONE TIME DAILY; SEVEN DAYS A WEEK - GIVEN A SUBQ INJECTION WITH A 31 GAUGE SYRINGE)
     Route: 058
  4. ENALAPRIL [Concomitant]
     Active Substance: ENALAPRIL
     Dosage: 20 MG, 1X/DAY (TAKE 20 MILLIGRAM ENALAPRIL, ONE TIME DAILY)
  5. OZEMPIC [Concomitant]
     Active Substance: SEMAGLUTIDE
     Dosage: UNK (TAKE 0.5 OF OZEMPIC)
  6. LIOTHYRONINE [Concomitant]
     Active Substance: LIOTHYRONINE
     Dosage: 5 UG, 1X/DAY
  7. LEVOTHYROXINE [Concomitant]
     Active Substance: LEVOTHYROXINE\LEVOTHYROXINE SODIUM
     Dosage: 5 UG, 2X/DAY (TAKE THE 5 MICROGRAMS TWICE DAILY)
  8. BACTERIOSTATIC WATER [Concomitant]
     Active Substance: WATER
     Dosage: UNK

REACTIONS (5)
  - Injection site pain [Unknown]
  - Product supply issue [Unknown]
  - Product dose omission issue [Unknown]
  - Off label use [Unknown]
  - Device dispensing error [Unknown]

NARRATIVE: CASE EVENT DATE: 20230101
